FAERS Safety Report 10187803 (Version 1)
Quarter: 2014Q2

REPORT INFORMATION
  Report Type: Spontaneous
  Country: US (occurrence: None)
  Receive Date: 20140521
  Receipt Date: 20140521
  Transmission Date: 20141212
  Serious: Yes (Death)
  Sender: FDA-Public Use
  Company Number: None

PATIENT
  Age: 75 Year
  Sex: Male
  Weight: 128 kg

DRUGS (4)
  1. LOVENOX [Suspect]
     Indication: ATRIAL FIBRILLATION
     Route: 058
     Dates: start: 20140401, end: 20140410
  2. AMIO [Concomitant]
  3. DILT [Concomitant]
  4. DIG [Concomitant]

REACTIONS (5)
  - Tachycardia [None]
  - Retroperitoneal haemorrhage [None]
  - Hypotension [None]
  - Hypovolaemic shock [None]
  - Sepsis [None]
